FAERS Safety Report 8577979-X (Version None)
Quarter: 2012Q3

REPORT INFORMATION
  Report Type: 
  Country: None (occurrence: None)
  Receive Date: 20120725
  Receipt Date: 20120716
  Transmission Date: 20120928
  Serious: Yes (Death, Life-Threatening, Other)
  Sender: FDA-Public Use
  Company Number: AUR-APL-2012-03044

PATIENT
  Sex: Female

DRUGS (5)
  1. PYRIDOXINE HCL [Suspect]
     Indication: MYOCLONIC EPILEPSY
  2. VALPROATE SODIUM [Suspect]
     Indication: MYOCLONIC EPILEPSY
  3. PHENYTOIN (PHENYTOIN) [Suspect]
     Indication: MYOCLONIC EPILEPSY
  4. TOPIRAMATE [Suspect]
     Indication: MYOCLONIC EPILEPSY
  5. PHENOBARBITAL TAB [Suspect]
     Indication: MYOCLONIC EPILEPSY

REACTIONS (2)
  - HYPOTONIA NEONATAL [None]
  - LETHARGY [None]
